FAERS Safety Report 24626159 (Version 2)
Quarter: 2025Q1

REPORT INFORMATION
  Report Type: Spontaneous
  Country: FR (occurrence: FR)
  Receive Date: 20241115
  Receipt Date: 20250102
  Transmission Date: 20250408
  Serious: Yes (Death, Other)
  Sender: MERCK
  Company Number: FR-009507513-2411FRA005182

PATIENT
  Age: 63 Year
  Sex: Female

DRUGS (1)
  1. KEYTRUDA [Suspect]
     Active Substance: PEMBROLIZUMAB
     Indication: Triple negative breast cancer
     Dosage: 200 MILLIGRAM, Q3W
     Dates: end: 20240930

REACTIONS (3)
  - General physical health deterioration [Fatal]
  - Acute kidney injury [Unknown]
  - Infection [Unknown]

NARRATIVE: CASE EVENT DATE: 20240101
